FAERS Safety Report 5580072-1 (Version None)
Quarter: 2007Q4

REPORT INFORMATION
  Report Type: 
  Country: None (occurrence: None)
  Receive Date: 20071227
  Receipt Date: 20071227
  Transmission Date: 20080405
  Serious: No
  Sender: FDA-Public Use
  Company Number: None

PATIENT
  Age: 51 Year
  Sex: Female
  Weight: 79.3795 kg

DRUGS (1)
  1. TERBINAFINE HYDROCHLORIDE [Suspect]
     Indication: ONYCHOMYCOSIS
     Dosage: 250MG ONCE DAILY PO
     Route: 048
     Dates: start: 20071106, end: 20071205

REACTIONS (8)
  - AGEUSIA [None]
  - ANXIETY [None]
  - DYSGEUSIA [None]
  - ORAL INTAKE REDUCED [None]
  - RETCHING [None]
  - SENSATION OF FOREIGN BODY [None]
  - STRESS [None]
  - WEIGHT DECREASED [None]
